FAERS Safety Report 6504661-2 (Version None)
Quarter: 2009Q4

REPORT INFORMATION
  Report Type: 
  Country: None (occurrence: None)
  Receive Date: 20091216
  Receipt Date: 20091216
  Transmission Date: 20100525
  Serious: No
  Sender: FDA-Public Use
  Company Number: None

PATIENT
  Sex: Male
  Weight: 72.5755 kg

DRUGS (1)
  1. QUETIAPINE FUMARATE [Suspect]
     Dosage: 1/2 25 MG DAILY (9PM SLEEP QUETIAPINE FUMARATE 25 MG TAB

REACTIONS (9)
  - CONSTIPATION [None]
  - DIZZINESS [None]
  - DRY MOUTH [None]
  - DYSKINESIA [None]
  - DYSPHAGIA [None]
  - FALL [None]
  - GAIT DISTURBANCE [None]
  - PRURITUS [None]
  - TREMOR [None]
